FAERS Safety Report 25169589 (Version 1)
Quarter: 2025Q2

REPORT INFORMATION
  Report Type: Spontaneous
  Country: US (occurrence: US)
  Receive Date: 20250407
  Receipt Date: 20250407
  Transmission Date: 20250716
  Serious: No
  Sender: ELI LILLY AND CO
  Company Number: US-ELI_LILLY_AND_COMPANY-US202504005252

PATIENT
  Age: 57 Year
  Sex: Female

DRUGS (3)
  1. HUMULIN 70/30 [Suspect]
     Active Substance: INSULIN HUMAN
     Indication: Product used for unknown indication
     Route: 058
     Dates: start: 2022
  2. HUMULIN 70/30 [Suspect]
     Active Substance: INSULIN HUMAN
     Route: 058
     Dates: start: 2022
  3. HUMULIN 70/30 [Suspect]
     Active Substance: INSULIN HUMAN
     Route: 058
     Dates: start: 2022

REACTIONS (1)
  - Accidental underdose [Unknown]
